FAERS Safety Report 8643795 (Version 3)
Quarter: 2019Q1

REPORT INFORMATION
  Report Type: Spontaneous
  Country: US (occurrence: US)
  Receive Date: 20120629
  Receipt Date: 20190110
  Transmission Date: 20190418
  Serious: Yes (Hospitalization, Other)
  Sender: FDA-Public Use
  Company Number: US-PFIZER INC-2012153142

PATIENT
  Age: 55 Year
  Sex: Female
  Weight: 59 kg

DRUGS (3)
  1. PROPYLENE GLYCOL [Suspect]
     Active Substance: PROPYLENE GLYCOL
     Dosage: UNK
  2. LYRICA [Suspect]
     Active Substance: PREGABALIN
     Dosage: 50 MG, THREE TIMES A DAY
     Route: 048
     Dates: start: 20120614, end: 20120616
  3. NORPACE [Concomitant]
     Active Substance: DISOPYRAMIDE PHOSPHATE
     Dosage: UNK

REACTIONS (8)
  - Oral mucosal blistering [Recovering/Resolving]
  - Oral mucosal eruption [Recovering/Resolving]
  - Swollen tongue [Recovering/Resolving]
  - Allergic reaction to excipient [Recovering/Resolving]
  - Swelling face [Recovering/Resolving]
  - Lip swelling [Unknown]
  - Skin irritation [Recovering/Resolving]
  - Swelling of eyelid [Unknown]

NARRATIVE: CASE EVENT DATE: 201206
